FAERS Safety Report 9848051 (Version 2)
Quarter: 2014Q2

REPORT INFORMATION
  Report Type: Spontaneous
  Country: BR (occurrence: BR)
  Receive Date: 20140128
  Receipt Date: 20140509
  Transmission Date: 20141212
  Serious: Yes (Hospitalization, Other)
  Sender: FDA-Public Use
  Company Number: BR-VERTEX PHARMACEUTICALS INC-2014-000411

PATIENT
  Age: 71 Year
  Sex: Male

DRUGS (5)
  1. INCIVO [Suspect]
     Indication: HEPATITIS C
     Dosage: 750 MG, TID
     Route: 065
     Dates: start: 20130909, end: 20131014
  2. PEGINTERFERON ALFA 2A [Concomitant]
     Indication: HEPATITIS C
     Dosage: 180 MG, QW
     Route: 065
     Dates: start: 20130812, end: 20131014
  3. RIBAVIRIN [Concomitant]
     Indication: HEPATITIS C
     Dosage: 1000 MG, QD
     Route: 065
     Dates: start: 20130812, end: 201309
  4. RIBAVIRIN [Concomitant]
     Dosage: 750 MG, UNK
     Route: 065
     Dates: start: 201309, end: 20131014
  5. ERYTHROPOIETIN [Concomitant]
     Dosage: 10000 IU, UNK
     Route: 065
     Dates: start: 20130929, end: 201310

REACTIONS (8)
  - Pancreatitis acute [Recovered/Resolved]
  - Haemoglobin decreased [Unknown]
  - Decreased appetite [Unknown]
  - Weight decreased [Unknown]
  - Influenza [Unknown]
  - Headache [Unknown]
  - Pain in extremity [Unknown]
  - Asthenia [Unknown]
